FAERS Safety Report 13135230 (Version 1)
Quarter: 2017Q1

REPORT INFORMATION
  Report Type: Spontaneous
  Country: GB (occurrence: GB)
  Receive Date: 20170120
  Receipt Date: 20170120
  Transmission Date: 20170428
  Serious: Yes (Life-Threatening, Other)
  Sender: FDA-Public Use
  Company Number: GB-ALLERGAN-1702366US

PATIENT
  Age: 33 Year
  Sex: Male
  Weight: 55 kg

DRUGS (9)
  1. MIVACURIUM CHLORIDE. [Concomitant]
     Active Substance: MIVACURIUM CHLORIDE
     Indication: ANAESTHESIA
     Dosage: DOSAGE FORM: UNSPECIFIED
     Route: 065
     Dates: start: 20020128
  2. CITALOPRAM HYDROBROMIDE - BP [Suspect]
     Active Substance: CITALOPRAM HYDROBROMIDE
     Indication: DEPRESSION
     Dosage: UNK MG, UNK
     Route: 048
     Dates: start: 200106
  3. RANITIDINE. [Concomitant]
     Active Substance: RANITIDINE
     Indication: PRODUCT USED FOR UNKNOWN INDICATION
     Dosage: DOSAGE FORM: UNSPECIFIED
     Route: 048
  4. COCAINE [Interacting]
     Active Substance: COCAINE
     Indication: ANAESTHESIA
     Dosage: 100MG OF COCAINE 25% PASTE
     Route: 045
     Dates: start: 20020128
  5. HYPNOMIDATE [Suspect]
     Active Substance: ETOMIDATE SULFATE
     Indication: ANAESTHESIA
     Dosage: DOSAGE FORM: UNSPECIFIED
     Route: 041
     Dates: start: 20020128
  6. ISOFLURANE. [Concomitant]
     Active Substance: ISOFLURANE
     Indication: ANAESTHESIA
     Dosage: DOSAGE FORM: UNSPECIFIED
     Route: 065
  7. CHLORPHENAMINE [Concomitant]
     Active Substance: CHLORPHENIRAMINE MALEATE
     Indication: PRODUCT USED FOR UNKNOWN INDICATION
     Dosage: DOSAGE FORM: UNSPECIFIED
     Route: 048
  8. PARACETAMOL [Concomitant]
     Active Substance: ACETAMINOPHEN
     Indication: PRODUCT USED FOR UNKNOWN INDICATION
     Dosage: DOSAGE FORM: UNSPECIFIED
     Route: 048
  9. SUBLIMAZE [Concomitant]
     Active Substance: FENTANYL CITRATE
     Indication: ANAESTHESIA
     Dosage: DOSAGE FORM: UNSPECIFIED
     Route: 065
     Dates: start: 20020128

REACTIONS (3)
  - Thrombophlebitis [Unknown]
  - Suicidal ideation [Recovered/Resolved]
  - Drug interaction [Recovered/Resolved]

NARRATIVE: CASE EVENT DATE: 20020129
